FAERS Safety Report 9800018 (Version 2)
Quarter: 2014Q1

REPORT INFORMATION
  Report Type: Spontaneous
  Country: US (occurrence: US)
  Receive Date: 20140106
  Receipt Date: 20140106
  Transmission Date: 20141002
  Serious: No
  Sender: FDA-Public Use
  Company Number: US-GILEAD-2010-0030998

PATIENT
  Age: 87 Year
  Sex: Male
  Weight: 77 kg

DRUGS (11)
  1. LETAIRIS [Suspect]
     Indication: PULMONARY ARTERIAL HYPERTENSION
     Route: 048
     Dates: start: 20090723
  2. DIGOXIN [Concomitant]
  3. TOPROL XL [Concomitant]
  4. LIPITOR [Concomitant]
  5. LISINOPRIL [Concomitant]
  6. LASIX [Concomitant]
  7. COUMADIN [Concomitant]
  8. WARFARIN [Concomitant]
  9. ADVAIR DISKUS [Concomitant]
  10. ASA [Concomitant]
  11. MULTIVITAMIN [Concomitant]

REACTIONS (1)
  - Drug ineffective for unapproved indication [Not Recovered/Not Resolved]
